FAERS Safety Report 4596071-2 (Version None)
Quarter: 2005Q1

REPORT INFORMATION
  Report Type: 
  Country: None (occurrence: None)
  Receive Date: 20050228
  Receipt Date: 20050228
  Transmission Date: 20050727
  Serious: Yes (Other)
  Sender: FDA-Public Use
  Company Number: None

PATIENT
  Age: 75 Year
  Sex: Female
  Weight: 56.6996 kg

DRUGS (4)
  1. PLAVIX [Suspect]
     Indication: ISCHAEMIC STROKE
     Dosage: ONE A DAY
     Dates: start: 20020619, end: 20050213
  2. INDERAL LA [Concomitant]
  3. LOZAL [Concomitant]
  4. MEVACOR [Concomitant]

REACTIONS (13)
  - ANOREXIA [None]
  - ANXIETY [None]
  - ASTHENIA [None]
  - CONTUSION [None]
  - DEPRESSION [None]
  - DISCOMFORT [None]
  - EATING DISORDER [None]
  - GLOSSODYNIA [None]
  - ORAL DISCOMFORT [None]
  - PHARYNGOLARYNGEAL PAIN [None]
  - PRURITUS [None]
  - RASH [None]
  - TREATMENT NONCOMPLIANCE [None]
